FAERS Safety Report 10274529 (Version 1)
Quarter: 2014Q3

REPORT INFORMATION
  Report Type: Spontaneous
  Country: US (occurrence: US)
  Receive Date: 20140702
  Receipt Date: 20140702
  Transmission Date: 20150326
  Serious: Yes (Other)
  Sender: FDA-Public Use
  Company Number: US-TEVA-491068USA

PATIENT
  Age: 72 Year
  Sex: Male
  Weight: 60.38 kg

DRUGS (4)
  1. MORPHINE [Concomitant]
     Active Substance: MORPHINE
     Indication: PAIN
     Dates: end: 201406
  2. TRAMADEX [Concomitant]
     Active Substance: TRAMADOL
     Indication: PAIN
  3. ACTIQ [Suspect]
     Active Substance: FENTANYL CITRATE
     Indication: PAIN
     Route: 048
  4. MARIJUANA [Concomitant]
     Active Substance: CANNABIS SATIVA SUBSP. INDICA TOP
     Indication: PAIN

REACTIONS (5)
  - Musculoskeletal discomfort [Unknown]
  - Headache [Unknown]
  - Haemorrhage intracranial [Recovering/Resolving]
  - Incorrect dosage administered [Unknown]
  - Weight decreased [Unknown]

NARRATIVE: CASE EVENT DATE: 201212
